FAERS Safety Report 14494323 (Version 4)
Quarter: 2018Q1

REPORT INFORMATION
  Report Type: Spontaneous
  Country: DE (occurrence: DE)
  Receive Date: 20180206
  Receipt Date: 20180219
  Transmission Date: 20180509
  Serious: Yes (Other)
  Sender: FDA-Public Use
  Company Number: DE-PFIZER INC-2018049137

PATIENT
  Age: 78 Year
  Sex: Male
  Weight: 70 kg

DRUGS (13)
  1. L-THYROXIN [Concomitant]
     Active Substance: LEVOTHYROXINE SODIUM
     Dosage: 0-1-0
  2. SIMVASTATIN. [Concomitant]
     Active Substance: SIMVASTATIN
     Dosage: 0-1-0
  3. SIMVASTATIN. [Concomitant]
     Active Substance: SIMVASTATIN
     Dosage: 0-0-1, 1X/DAY
  4. ASPIRIN. [Concomitant]
     Active Substance: ASPIRIN
     Dosage: 0-1-0
  5. HEPARIN-RATIOPHARM [Suspect]
     Active Substance: HEPARIN SODIUM
     Dosage: UNK
  6. BISOPROLOL [Concomitant]
     Active Substance: BISOPROLOL
     Dosage: 0-1-0
  7. RAMIPRIL. [Concomitant]
     Active Substance: RAMIPRIL
     Dosage: 0-1-0
  8. HEPARIN-RATIOPHARM [Suspect]
     Active Substance: HEPARIN SODIUM
     Dosage: UNK
  9. RAMIPRIL. [Concomitant]
     Active Substance: RAMIPRIL
     Dosage: 1-0-0, 1X/DAY
  10. TRANEXAMIC ACID. [Suspect]
     Active Substance: TRANEXAMIC ACID
     Dosage: 10 ML, UNK
     Dates: start: 20170828, end: 20170828
  11. L-THYROXIN [Concomitant]
     Active Substance: LEVOTHYROXINE SODIUM
     Dosage: 125 MICROGRAM DAILY; 1-0-0
  12. BISOPROLOL [Concomitant]
     Active Substance: BISOPROLOL
     Dosage: 1-0-0, 1X/DAY
  13. HEPARIN-RATIOPHARM [Suspect]
     Active Substance: HEPARIN SODIUM
     Dosage: 0-1-0, 40000 IU (INTERNATIONAL UNIT) DAILY
     Dates: start: 20170828, end: 20170828

REACTIONS (3)
  - Blood pressure decreased [Unknown]
  - Circulatory collapse [Unknown]
  - Vasodilatation [Recovered/Resolved]

NARRATIVE: CASE EVENT DATE: 20170828
